FAERS Safety Report 8443237-7 (Version None)
Quarter: 2012Q2

REPORT INFORMATION
  Report Type: 
  Country: None (occurrence: None)
  Receive Date: 20120617
  Receipt Date: 20120608
  Transmission Date: 20120825
  Serious: Yes (Other)
  Sender: FDA-Public Use
  Company Number: GB-ROXANE LABORATORIES, INC.-2012-RO-01385RO

PATIENT
  Age: 48 Year
  Sex: Male

DRUGS (6)
  1. ENGERIX-B [Concomitant]
     Indication: HEPATITIS B IMMUNISATION
  2. HBVAXPRO [Concomitant]
     Indication: HEPATITIS B IMMUNISATION
  3. ZIDOVUDINE [Suspect]
     Indication: ANTIRETROVIRAL THERAPY
     Dates: start: 20060601, end: 20071101
  4. ABACAVIR [Suspect]
     Indication: ANTIRETROVIRAL THERAPY
     Dates: start: 20071101
  5. EFAVIRENZ [Suspect]
     Indication: ANTIRETROVIRAL THERAPY
     Dates: start: 20060601
  6. LAMIVUDINE [Suspect]
     Indication: ANTIRETROVIRAL THERAPY
     Dates: start: 20060601

REACTIONS (2)
  - HEPATITIS B [None]
  - LIPOATROPHY [None]
